FAERS Safety Report 4457408-8 (Version None)
Quarter: 2004Q3

REPORT INFORMATION
  Report Type: 
  Country: None (occurrence: None)
  Receive Date: 20040922
  Receipt Date: 20040907
  Transmission Date: 20050211
  Serious: Yes (Hospitalization, Other)
  Sender: FDA-Public Use
  Company Number: USA030434778

PATIENT
  Age: 67 Year
  Sex: Female
  Weight: 55 kg

DRUGS (6)
  1. FORTEO [Suspect]
     Indication: OSTEOPOROSIS
     Dosage: 20 UG DAY
     Dates: start: 20030401
  2. FORTEO [Suspect]
     Indication: SPINAL COMPRESSION FRACTURE
     Dosage: 20 UG DAY
     Dates: start: 20030401
  3. ALKERAN [Concomitant]
  4. CALCITRIOL [Concomitant]
  5. PREDNISONE [Concomitant]
  6. RYTHMOL [Concomitant]

REACTIONS (23)
  - BLADDER DISORDER [None]
  - BLADDER PROLAPSE [None]
  - CYSTITIS [None]
  - DISTURBANCE IN ATTENTION [None]
  - FACE AND MOUTH X-RAY ABNORMAL [None]
  - FATIGUE [None]
  - FEELING ABNORMAL [None]
  - INJECTION SITE ERYTHEMA [None]
  - INJECTION SITE HAEMORRHAGE [None]
  - INJECTION SITE PAIN [None]
  - INJECTION SITE REACTION [None]
  - KERATOCONJUNCTIVITIS SICCA [None]
  - MEMORY IMPAIRMENT [None]
  - NAUSEA [None]
  - PARAESTHESIA [None]
  - PHARMACEUTICAL PRODUCT COMPLAINT [None]
  - RETINAL DETACHMENT [None]
  - SPEECH DISORDER [None]
  - TOOTH ABSCESS [None]
  - TOOTHACHE [None]
  - URINARY INCONTINENCE [None]
  - URINARY TRACT INFECTION [None]
  - VAGINAL DISORDER [None]
